FAERS Safety Report 12318180 (Version 1)
Quarter: 2016Q2

REPORT INFORMATION
  Report Type: Spontaneous
  Country: IL (occurrence: IL)
  Receive Date: 20160429
  Receipt Date: 20160429
  Transmission Date: 20160815
  Serious: Yes (Other)
  Sender: FDA-Public Use
  Company Number: IL-BAYER-2016-076496

PATIENT
  Sex: Male

DRUGS (1)
  1. XOFIGO [Suspect]
     Active Substance: RADIUM RA-223 DICHLORIDE
     Dosage: HAD ONLY 4 TREATMENTS
     Dates: start: 20151229, end: 2016

REACTIONS (1)
  - General physical health deterioration [None]

NARRATIVE: CASE EVENT DATE: 2016
